FAERS Safety Report 5623961-1 (Version None)
Quarter: 2008Q1

REPORT INFORMATION
  Report Type: 
  Country: None (occurrence: None)
  Receive Date: 20080123
  Receipt Date: 20080111
  Transmission Date: 20080703
  Serious: Yes (Life-Threatening, Hospitalization)
  Sender: FDA-Public Use
  Company Number: 200812744

PATIENT
  Age: 18 Year
  Sex: Female
  Weight: 85 kg

DRUGS (1)
  1. VIVAGLOBIN [Suspect]
     Indication: IMMUNODEFICIENCY COMMON VARIABLE
     Dates: start: 20080110, end: 20080110

REACTIONS (4)
  - BRONCHOSPASM [None]
  - CHILLS [None]
  - HYPOXIA [None]
  - TACHYCARDIA [None]
